FAERS Safety Report 5266538-2 (Version None)
Quarter: 2007Q1

REPORT INFORMATION
  Report Type: 
  Country: None (occurrence: None)
  Receive Date: 20070315
  Receipt Date: 20070306
  Transmission Date: 20070707
  Serious: Yes (Other)
  Sender: FDA-Public Use
  Company Number: JP-PFIZER INC-2007013630

PATIENT
  Sex: Female

DRUGS (2)
  1. LIPITOR [Suspect]
     Indication: HYPERCHOLESTEROLAEMIA
     Dosage: DAILY DOSE:5MG-FREQ:DAILY
     Route: 048
     Dates: start: 20050518, end: 20061229
  2. RISEDRONATE SODIUM [Suspect]
     Indication: OSTEOPOROSIS
     Dosage: DAILY DOSE:2.5MG-FREQ:DAILY
     Route: 048
     Dates: start: 20060607, end: 20061229

REACTIONS (2)
  - PLATELET COUNT DECREASED [None]
  - PURPURA [None]
